FAERS Safety Report 7084813-6 (Version None)
Quarter: 2010Q4

REPORT INFORMATION
  Report Type: 
  Country: None (occurrence: None)
  Receive Date: 20101105
  Receipt Date: 20101103
  Transmission Date: 20110411
  Serious: No
  Sender: FDA-Public Use
  Company Number: US-BIOGENIDEC-2010BI036706

PATIENT
  Age: 61 Year
  Sex: Female

DRUGS (1)
  1. TYSABRI [Suspect]
     Indication: MULTIPLE SCLEROSIS
     Route: 042
     Dates: start: 20091027, end: 20101005

REACTIONS (3)
  - FULL BLOOD COUNT ABNORMAL [None]
  - LYMPHOCYTE COUNT ABNORMAL [None]
  - METABOLIC FUNCTION TEST ABNORMAL [None]
